FAERS Safety Report 11128419 (Version 6)
Quarter: 2015Q3

REPORT INFORMATION
  Report Type: Report from Study
  Country: JP (occurrence: JP)
  Receive Date: 20150521
  Receipt Date: 20150819
  Transmission Date: 20151125
  Serious: Yes (Hospitalization)
  Sender: FDA-Public Use
  Company Number: JP-EISAI MEDICAL RESEARCH-EC-2015-003466

PATIENT
  Age: 71 Year
  Sex: Female
  Weight: 37 kg

DRUGS (9)
  1. THYRADIN S [Concomitant]
     Active Substance: LEVOTHYROXINE SODIUM
  2. LENVATINIB [Suspect]
     Active Substance: LENVATINIB
     Indication: THYROID CANCER
     Route: 048
     Dates: start: 20140812, end: 20150128
  3. LENVATINIB [Suspect]
     Active Substance: LENVATINIB
     Route: 048
     Dates: start: 2015, end: 20150515
  4. AMLODIN [Concomitant]
     Active Substance: AMLODIPINE BESYLATE
  5. BEZATOL SR [Concomitant]
     Active Substance: BEZAFIBRATE
  6. MAGLAX [Concomitant]
     Active Substance: MAGNESIUM OXIDE
  7. LANSOPRAZOLE. [Concomitant]
     Active Substance: LANSOPRAZOLE
  8. BLOPRESS [Concomitant]
     Active Substance: CANDESARTAN CILEXETIL
  9. MUCODYNE [Concomitant]
     Active Substance: CARBOCYSTEINE

REACTIONS (1)
  - Pneumonia [Recovered/Resolved]

NARRATIVE: CASE EVENT DATE: 20150128
